FAERS Safety Report 20292217 (Version 2)
Quarter: 2022Q1

REPORT INFORMATION
  Report Type: Spontaneous
  Country: FR (occurrence: FR)
  Receive Date: 20220104
  Receipt Date: 20220119
  Transmission Date: 20220423
  Serious: Yes (Hospitalization, Other)
  Sender: FDA-Public Use
  Company Number: FR-PFM-2021-11376

PATIENT
  Age: 42 Year
  Sex: Female

DRUGS (4)
  1. MEKTOVI [Suspect]
     Active Substance: BINIMETINIB
     Indication: Melanoma recurrent
     Dosage: UNK
     Route: 065
     Dates: start: 20211004, end: 20211014
  2. MEKTOVI [Suspect]
     Active Substance: BINIMETINIB
     Dosage: 30 MG, BID (2/DAY) IN THE MORNING AND IN THE EVENING
     Route: 065
     Dates: start: 20211015
  3. BRAFTOVI [Suspect]
     Active Substance: ENCORAFENIB
     Indication: Melanoma recurrent
     Dosage: UNK
     Route: 065
     Dates: start: 20211004, end: 20211014
  4. BRAFTOVI [Suspect]
     Active Substance: ENCORAFENIB
     Dosage: 300MG, IN THE MORNING
     Route: 065
     Dates: start: 20211015

REACTIONS (3)
  - Neuralgic amyotrophy [Recovered/Resolved with Sequelae]
  - Retinal detachment [Unknown]
  - Palmar-plantar erythrodysaesthesia syndrome [Recovered/Resolved]

NARRATIVE: CASE EVENT DATE: 20211001
